FAERS Safety Report 5407005-2 (Version None)
Quarter: 2007Q3

REPORT INFORMATION
  Report Type: 
  Country: None (occurrence: None)
  Receive Date: 20070803
  Receipt Date: 20070803
  Transmission Date: 20080115
  Serious: Yes (Hospitalization)
  Sender: FDA-Public Use
  Company Number: None

PATIENT
  Age: 89 Year
  Sex: Female
  Weight: 47.73 kg

DRUGS (6)
  1. METOCLOPRAMIDE HCL [Suspect]
     Indication: SURGERY
     Dosage: 500 MG Q8H IV
     Route: 042
     Dates: start: 20070615, end: 20070628
  2. METOCLOPRAMIDE HCL [Concomitant]
  3. ENALAPRIL MALEATE [Concomitant]
  4. FLUCONAZOLE [Concomitant]
  5. VANCOMYCIN HCL [Concomitant]
  6. MORPHINE SULFATE [Concomitant]

REACTIONS (1)
  - THROMBOCYTHAEMIA [None]
